FAERS Safety Report 5563973-X (Version None)
Quarter: 2007Q4

REPORT INFORMATION
  Report Type: 
  Country: None (occurrence: None)
  Receive Date: 20071217
  Receipt Date: 20071210
  Transmission Date: 20080405
  Serious: Yes (Hospitalization)
  Sender: FDA-Public Use
  Company Number: US-ELI_LILLY_AND_COMPANY-US200712001858

PATIENT
  Sex: Male

DRUGS (2)
  1. HUMULIN 70/30 [Suspect]
  2. HUMULIN 70/30 [Suspect]
     Dates: start: 20071210, end: 20071210

REACTIONS (3)
  - BLOOD GLUCOSE INCREASED [None]
  - VISION BLURRED [None]
  - VISUAL DISTURBANCE [None]
